FAERS Safety Report 21789591 (Version 1)
Quarter: 2022Q4

REPORT INFORMATION
  Report Type: Spontaneous
  Country: US (occurrence: US)
  Receive Date: 20221228
  Receipt Date: 20221228
  Transmission Date: 20230113
  Serious: Yes (Other)
  Sender: FDA-Public Use
  Company Number: US-ABBVIE-4251922

PATIENT
  Sex: Female

DRUGS (1)
  1. SYNTHROID [Suspect]
     Active Substance: LEVOTHYROXINE SODIUM
     Indication: Hypothyroidism
     Route: 048

REACTIONS (7)
  - Road traffic accident [Unknown]
  - Skin exfoliation [Unknown]
  - Alopecia [Unknown]
  - Atrial fibrillation [Unknown]
  - Erythema [Unknown]
  - Poor quality sleep [Unknown]
  - Onychoclasis [Unknown]

NARRATIVE: CASE EVENT DATE: 20130101
